FAERS Safety Report 7688926-7 (Version None)
Quarter: 2011Q3

REPORT INFORMATION
  Report Type: 
  Country: None (occurrence: None)
  Receive Date: 20110817
  Receipt Date: 20110813
  Transmission Date: 20111222
  Serious: Yes (Other)
  Sender: FDA-Public Use
  Company Number: JP-PFIZER INC-2011187242

PATIENT
  Age: 58 Year
  Sex: Male

DRUGS (8)
  1. DISOPYRAMIDE PHOSPHATE [Suspect]
     Dosage: 200 MG,  EVERY 6 HOURS
  2. PROPRANOLOL HCL [Suspect]
     Dosage: 20 MG, EVERY 6 HOURS
  3. WARFARIN [Concomitant]
  4. DIGOXIN [Concomitant]
  5. FUROSEMIDE [Concomitant]
  6. POTASSIUM CHLORIDE [Concomitant]
  7. DIAZEPAM [Concomitant]
  8. NITROGLYCERIN [Concomitant]

REACTIONS (5)
  - CARDIO-RESPIRATORY ARREST [None]
  - ELECTROCARDIOGRAM QT PROLONGED [None]
  - HYPOTENSION [None]
  - VENTRICULAR TACHYCARDIA [None]
  - HYPOGLYCAEMIA [None]
